FAERS Safety Report 11608122 (Version 1)
Quarter: 2015Q4

REPORT INFORMATION
  Report Type: Report from Study
  Country: JP (occurrence: JP)
  Receive Date: 20151007
  Receipt Date: 20151007
  Transmission Date: 20160304
  Serious: Yes (Other)
  Sender: FDA-Public Use
  Company Number: JP-DEP_12572_2015

PATIENT
  Age: 61 Year
  Sex: Male

DRUGS (16)
  1. ZOMETA - ZOLEDRONIC ACID [Concomitant]
     Indication: HYPERCALCAEMIA
     Dosage: DF
     Dates: start: 20150706, end: 20150706
  2. SOLDEM 3A [Concomitant]
     Active Substance: CARBOHYDRATES\POTASSIUM CHLORIDE\SODIUM CHLORIDE\SODIUM LACTATE
     Indication: RENAL DISORDER
     Dosage: DF
     Dates: start: 20150706, end: 20150715
  3. LOXOPROFEN (LOXOPROFEN) [Suspect]
     Active Substance: LOXOPROFEN
     Indication: CANCER PAIN
     Route: 048
     Dates: start: 20150427, end: 20150706
  4. OXINORM /00045603/ - OXYCODONE HYDROCHLORIDE [Concomitant]
     Indication: CANCER PAIN
     Dosage: DF
     Dates: start: 20150628, end: 20150629
  5. ISOTONIC SODIUM CHLORIDE SOLUTION - SODIUM CHLORIDE [Concomitant]
     Indication: HYPERCALCAEMIA
     Dosage: DF
     Dates: start: 20150706, end: 20150713
  6. TAPENTA (TAPENTADOL) [Suspect]
     Active Substance: TAPENTADOL HYDROCHLORIDE
     Indication: CANCER PAIN
     Route: 048
     Dates: start: 20150629, end: 20150710
  7. OXINORM /00045603/ - OXYCODONE HYDROCHLORIDE [Concomitant]
     Indication: CANCER PAIN
     Dosage: DF
     Dates: start: 20150701, end: 20150701
  8. OXINORM /00045603/ - OXYCODONE HYDROCHLORIDE [Concomitant]
     Indication: CANCER PAIN
     Dosage: DF
     Dates: start: 20150704, end: 20150708
  9. OXINORM /00045603/ - OXYCODONE HYDROCHLORIDE [Concomitant]
     Indication: CANCER PAIN
     Dosage: DF
     Dates: start: 20150702, end: 20150702
  10. ISOTONIC SODIUM CHLORIDE SOLUTION - SODIUM CHLORIDE [Concomitant]
     Indication: RENAL DISORDER
     Dosage: DF
     Dates: start: 20150706, end: 20150713
  11. SOLDEM 3A [Concomitant]
     Active Substance: CARBOHYDRATES\POTASSIUM CHLORIDE\SODIUM CHLORIDE\SODIUM LACTATE
     Indication: HYPERCALCAEMIA
     Dosage: DF
     Dates: start: 20150706, end: 20150715
  12. IOPAMIRON [Suspect]
     Active Substance: IOPAMIDOL
     Indication: CANCER PAIN
     Dates: start: 20150701, end: 20150701
  13. OXINORM /00045603/ - OXYCODONE HYDROCHLORIDE [Concomitant]
     Indication: CANCER PAIN
     Dosage: DF
     Dates: start: 20150630, end: 20150630
  14. OXINORM /00045603/ - OXYCODONE HYDROCHLORIDE [Concomitant]
     Indication: CANCER PAIN
     Dosage: DF
     Dates: start: 20150712, end: 20150712
  15. OXINORM /00045603/ - OXYCODONE HYDROCHLORIDE [Concomitant]
     Indication: CANCER PAIN
     Dosage: DF
     Dates: start: 20150709, end: 20150709
  16. OXINORM /00045603/ - OXYCODONE HYDROCHLORIDE [Concomitant]
     Indication: CANCER PAIN
     Dosage: DF
     Dates: start: 20150710, end: 20150710

REACTIONS (3)
  - Hypercalcaemia [Recovered/Resolved]
  - Renal disorder [Recovered/Resolved]
  - Delirium [Not Recovered/Not Resolved]

NARRATIVE: CASE EVENT DATE: 20150706
